FAERS Safety Report 8306089-1 (Version None)
Quarter: 2012Q2

REPORT INFORMATION
  Report Type: 
  Country: None (occurrence: None)
  Receive Date: 20120423
  Receipt Date: 20120409
  Transmission Date: 20120825
  Serious: Yes (Hospitalization)
  Sender: FDA-Public Use
  Company Number: CHPA2012US009063

PATIENT
  Sex: Female
  Weight: 77.098 kg

DRUGS (2)
  1. NICOTINE [Suspect]
     Indication: SMOKING CESSATION THERAPY
     Dosage: UNK, UNK
     Route: 062
     Dates: start: 20111224, end: 20120301
  2. CHANTIX [Suspect]
     Indication: SMOKING CESSATION THERAPY
     Dosage: 0.5 MG, QD
     Route: 048
     Dates: start: 20090101, end: 20090101

REACTIONS (4)
  - CEREBROVASCULAR ACCIDENT [None]
  - BLISTER [None]
  - PRURITUS [None]
  - THERMAL BURN [None]
